FAERS Safety Report 7544860-4 (Version None)
Quarter: 2011Q2

REPORT INFORMATION
  Report Type: 
  Country: None (occurrence: None)
  Receive Date: 20110614
  Receipt Date: 20110601
  Transmission Date: 20111010
  Serious: Yes (Hospitalization)
  Sender: FDA-Public Use
  Company Number: US-BAYER-201028649NA

PATIENT
  Age: 20 Year
  Sex: Female
  Weight: 63.492 kg

DRUGS (24)
  1. AZITHROMYCIN [Concomitant]
  2. CEPHALEXIN [Concomitant]
  3. MAXALT-MLT [Concomitant]
  4. GLYCOPYRROLATE [Concomitant]
  5. TREZIX NOS [Concomitant]
  6. BUTORPHANOL TARATRATE [Concomitant]
  7. NEXIUM [Concomitant]
  8. ALLERGY MEDICATION [Concomitant]
  9. YAZ [Suspect]
     Indication: MENSTRUAL CYCLE MANAGEMENT
     Route: 048
     Dates: start: 20080501, end: 20100415
  10. TRAMADOL HCL [Concomitant]
  11. SALBUTAMOL SULFATE [Concomitant]
  12. ALLERGY MEDICATION [Concomitant]
  13. TOPIRAMATE [Concomitant]
  14. FROVA [Concomitant]
  15. POTASSIUM CHLORIDE [Concomitant]
  16. UNKNOWN DRUG [Concomitant]
  17. FENTANYL CITRATE [Concomitant]
  18. ALLERGY MEDICATION [Concomitant]
  19. ADDERALL 10 [Concomitant]
  20. YAZ [Suspect]
     Indication: PREMENSTRUAL SYNDROME
  21. PROPRANOLOL [Concomitant]
  22. VENTOLIN HFA [Concomitant]
  23. PROAIR HFA [Concomitant]
  24. ALLERGY TF [Concomitant]

REACTIONS (5)
  - VOMITING [None]
  - NAUSEA [None]
  - CHOLECYSTITIS CHRONIC [None]
  - ABDOMINAL PAIN UPPER [None]
  - GALLBLADDER INJURY [None]
